FAERS Safety Report 14372479 (Version 2)
Quarter: 2018Q1

REPORT INFORMATION
  Report Type: Report from Study
  Country: US (occurrence: US)
  Receive Date: 20180110
  Receipt Date: 20180116
  Transmission Date: 20180509
  Serious: Yes (Death, Hospitalization)
  Sender: FDA-Public Use
  Company Number: US-ACTELION-A-NJ2017-156226

PATIENT
  Age: 72 Year
  Sex: Male

DRUGS (9)
  1. ELIQUIS [Concomitant]
     Active Substance: APIXABAN
  2. OMEPRAZOLE. [Concomitant]
     Active Substance: OMEPRAZOLE
  3. ADCIRCA [Concomitant]
     Active Substance: TADALAFIL
  4. LEVOTHYROXINE. [Concomitant]
     Active Substance: LEVOTHYROXINE
  5. BUMETANIDE. [Concomitant]
     Active Substance: BUMETANIDE
  6. METOPROLOL. [Concomitant]
     Active Substance: METOPROLOL
  7. PROZAC [Concomitant]
     Active Substance: FLUOXETINE HYDROCHLORIDE
  8. DOXAZOSIN [Concomitant]
     Active Substance: DOXAZOSIN\DOXAZOSIN MESYLATE
  9. OPSUMIT [Suspect]
     Active Substance: MACITENTAN
     Indication: PULMONARY ARTERIAL HYPERTENSION
     Dosage: 10 MG, QD
     Route: 048
     Dates: start: 20150306

REACTIONS (3)
  - Death [Fatal]
  - Fluid retention [Unknown]
  - Drug dose omission [Unknown]

NARRATIVE: CASE EVENT DATE: 201801
